FAERS Safety Report 8270004-X (Version None)
Quarter: 2012Q2

REPORT INFORMATION
  Report Type: 
  Country: None (occurrence: None)
  Receive Date: 20120410
  Receipt Date: 20120327
  Transmission Date: 20120825
  Serious: Yes (Hospitalization)
  Sender: FDA-Public Use
  Company Number: FR-EISAI INC-E7389-01989-CLI-JP

PATIENT
  Sex: Female
  Weight: 68 kg

DRUGS (6)
  1. EPIRUBICIN HYDROCHLORIDE [Suspect]
     Indication: BREAST CANCER
     Route: 041
     Dates: start: 20111213
  2. NEXIUM [Concomitant]
     Indication: PROPHYLAXIS
  3. OXYCONTIN [Concomitant]
     Indication: ANALGESIC THERAPY
  4. LEVOCARNIL [Concomitant]
     Indication: CARNITINE DEFICIENCY
  5. VALSARTAN  AND HYDROCHLOROTHIAZIDE [Concomitant]
     Indication: HYPERTENSION
  6. ACETAMINOPHEN [Concomitant]
     Indication: ANALGESIC THERAPY

REACTIONS (1)
  - HYPERGLYCAEMIA [None]
